FAERS Safety Report 10982063 (Version 21)
Quarter: 2020Q3

REPORT INFORMATION
  Report Type: Report from Study
  Country: CA (occurrence: CA)
  Receive Date: 20150403
  Receipt Date: 20200703
  Transmission Date: 20201102
  Serious: Yes (Other)
  Sender: FDA-Public Use
  Company Number: CA-ROCHE-1350337

PATIENT
  Age: 43 Year
  Sex: Female
  Weight: 54 kg

DRUGS (22)
  1. KADCYLA [Suspect]
     Active Substance: ADO-TRASTUZUMAB EMTANSINE
     Route: 042
     Dates: start: 20141218, end: 20150402
  2. PERJETA [Suspect]
     Active Substance: PERTUZUMAB
     Route: 042
     Dates: start: 20160206
  3. BENADRYL [Concomitant]
     Active Substance: DIPHENHYDRAMINE HYDROCHLORIDE
     Route: 042
     Dates: start: 20140320, end: 20140813
  4. MAGNESIUM [Concomitant]
     Active Substance: MAGNESIUM
     Indication: PREMEDICATION
     Dosage: ONGOING
     Route: 042
  5. KADCYLA [Suspect]
     Active Substance: ADO-TRASTUZUMAB EMTANSINE
     Route: 042
     Dates: start: 20140202, end: 20141127
  6. ZYTRAM [Concomitant]
     Active Substance: TRAMADOL HYDROCHLORIDE
     Route: 065
     Dates: start: 20140220
  7. PACLITAXEL. [Concomitant]
     Active Substance: PACLITAXEL
     Indication: BREAST CANCER
     Route: 065
     Dates: start: 201607
  8. KADCYLA [Suspect]
     Active Substance: ADO-TRASTUZUMAB EMTANSINE
     Indication: BREAST CANCER METASTATIC
     Dosage: PATIENT ID: KAD0080
     Route: 042
     Dates: start: 20140227
  9. KADCYLA [Suspect]
     Active Substance: ADO-TRASTUZUMAB EMTANSINE
     Route: 042
     Dates: start: 20160317
  10. HERCEPTIN [Suspect]
     Active Substance: TRASTUZUMAB
     Route: 042
     Dates: start: 20200513
  11. HERCEPTIN [Suspect]
     Active Substance: TRASTUZUMAB
     Route: 042
     Dates: start: 20200604
  12. TAXOL [Concomitant]
     Active Substance: PACLITAXEL
     Indication: PRODUCT USED FOR UNKNOWN INDICATION
     Route: 065
     Dates: start: 201201, end: 2013
  13. ZYTRAM XL [Concomitant]
     Active Substance: TRAMADOL HYDROCHLORIDE
     Indication: PAIN
     Route: 065
     Dates: start: 20140220
  14. PACLITAXEL. [Concomitant]
     Active Substance: PACLITAXEL
     Route: 065
     Dates: start: 201207, end: 2013
  15. SOLU?MEDROL [Concomitant]
     Active Substance: METHYLPREDNISOLONE SODIUM SUCCINATE
     Route: 042
     Dates: start: 20140320, end: 20150402
  16. HERCEPTIN [Suspect]
     Active Substance: TRASTUZUMAB
     Route: 042
     Dates: start: 20160104, end: 2020
  17. XELODA [Suspect]
     Active Substance: CAPECITABINE
     Indication: PRODUCT USED FOR UNKNOWN INDICATION
     Route: 065
     Dates: start: 201310
  18. IVIGLOB EX [Suspect]
     Active Substance: HUMAN IMMUNOGLOBULIN G
     Indication: PRODUCT USED FOR UNKNOWN INDICATION
     Route: 065
  19. HERCEPTIN [Suspect]
     Active Substance: TRASTUZUMAB
     Indication: BREAST CANCER METASTATIC
     Dosage: DATE OF MOST RECENT DOSE 30/JAN/2014.
     Route: 065
     Dates: start: 201201, end: 201502
  20. HERCEPTIN [Suspect]
     Active Substance: TRASTUZUMAB
     Route: 065
     Dates: start: 20141218
  21. PERJETA [Suspect]
     Active Substance: PERTUZUMAB
     Indication: BREAST CANCER METASTATIC
     Route: 042
     Dates: start: 20160115, end: 20160115
  22. SOLU?MEDROL [Concomitant]
     Active Substance: METHYLPREDNISOLONE SODIUM SUCCINATE
     Route: 042
     Dates: start: 20140227, end: 20140320

REACTIONS (50)
  - Nasopharyngitis [Unknown]
  - Blood test abnormal [Unknown]
  - Constipation [Recovered/Resolved]
  - Stress [Unknown]
  - Pain [Not Recovered/Not Resolved]
  - Muscular weakness [Unknown]
  - Pruritus [Unknown]
  - Weight decreased [Recovered/Resolved]
  - Weight increased [Unknown]
  - Urinary tract infection [Recovered/Resolved]
  - Headache [Unknown]
  - Headache [Unknown]
  - Blister [Unknown]
  - Hypotension [Unknown]
  - Epistaxis [Not Recovered/Not Resolved]
  - Blood creatine phosphokinase increased [Not Recovered/Not Resolved]
  - Blood magnesium decreased [Unknown]
  - Injection site haemorrhage [Unknown]
  - Blood pressure systolic decreased [Unknown]
  - Asthenia [Not Recovered/Not Resolved]
  - Sneezing [Unknown]
  - Hyperaesthesia [Unknown]
  - Seasonal allergy [Unknown]
  - Dysmenorrhoea [Unknown]
  - Malignant neoplasm progression [Unknown]
  - Constipation [Not Recovered/Not Resolved]
  - Hyperaesthesia [Not Recovered/Not Resolved]
  - Abdominal pain [Unknown]
  - Nausea [Unknown]
  - Malaise [Unknown]
  - Dry throat [Unknown]
  - Dry skin [Unknown]
  - Skin fissures [Unknown]
  - Weight decreased [Unknown]
  - Recurrent cancer [Unknown]
  - Myalgia [Unknown]
  - Nausea [Not Recovered/Not Resolved]
  - Dry mouth [Not Recovered/Not Resolved]
  - Breast disorder [Not Recovered/Not Resolved]
  - Tumour marker increased [Not Recovered/Not Resolved]
  - Eczema [Not Recovered/Not Resolved]
  - Fatigue [Not Recovered/Not Resolved]
  - Paraesthesia [Not Recovered/Not Resolved]
  - Gingival pain [Not Recovered/Not Resolved]
  - Vulvovaginal pain [Recovering/Resolving]
  - Epistaxis [Unknown]
  - Faeces soft [Unknown]
  - Hepatitis [Unknown]
  - Palpitations [Unknown]
  - Hyperaesthesia [Not Recovered/Not Resolved]

NARRATIVE: CASE EVENT DATE: 2013
